FAERS Safety Report 7093246-8 (Version None)
Quarter: 2010Q4

REPORT INFORMATION
  Report Type: 
  Country: None (occurrence: None)
  Receive Date: 20101110
  Receipt Date: 20101104
  Transmission Date: 20110411
  Serious: Yes (Death)
  Sender: FDA-Public Use
  Company Number: US-CELGENEUS-163-21880-10110993

PATIENT
  Sex: Female

DRUGS (4)
  1. REVLIMID [Suspect]
     Indication: MULTIPLE MYELOMA
     Route: 048
     Dates: start: 20060801
  2. REVLIMID [Suspect]
     Dosage: 15-10-5MG
     Route: 048
     Dates: start: 20061001
  3. REVLIMID [Suspect]
     Dosage: 10-5MG
     Route: 048
     Dates: start: 20090721
  4. REVLIMID [Suspect]
     Route: 048
     Dates: start: 20100701

REACTIONS (1)
  - DEATH [None]
